FAERS Safety Report 6020644-3 (Version None)
Quarter: 2008Q4

REPORT INFORMATION
  Report Type: 
  Country: None (occurrence: None)
  Receive Date: 20081224
  Receipt Date: 20081224
  Transmission Date: 20090506
  Serious: Yes (Hospitalization)
  Sender: FDA-Public Use
  Company Number: None

PATIENT
  Sex: Female
  Weight: 56.6996 kg

DRUGS (1)
  1. FENTANYL CITRATE [Suspect]
     Indication: RHEUMATOID ARTHRITIS
     Dosage: 75MCG I Q48 H TOPICAL 1 PATCH ONLY
     Route: 061
     Dates: start: 20081127

REACTIONS (2)
  - DRUG WITHDRAWAL SYNDROME [None]
  - PRODUCT QUALITY ISSUE [None]
